FAERS Safety Report 4652196-4 (Version None)
Quarter: 2005Q2

REPORT INFORMATION
  Report Type: 
  Country: None (occurrence: None)
  Receive Date: 20050502
  Receipt Date: 20050418
  Transmission Date: 20051028
  Serious: Yes (Other)
  Sender: FDA-Public Use
  Company Number: 2005058719

PATIENT
  Sex: Female

DRUGS (2)
  1. BEXTRA [Suspect]
     Indication: SHOULDER PAIN
     Dosage: 40 MG (40 MG AS NEEDED) ORAL
     Route: 048
     Dates: start: 20050301, end: 20050401
  2. AMLODIPINE [Concomitant]

REACTIONS (2)
  - BLISTER [None]
  - ERYTHEMA [None]
